FAERS Safety Report 22382865 (Version 1)
Quarter: 2023Q2

REPORT INFORMATION
  Report Type: Spontaneous
  Country: US (occurrence: US)
  Receive Date: 20230530
  Receipt Date: 20230530
  Transmission Date: 20230721
  Serious: Yes (Disabling, Other)
  Sender: FDA-Public Use
  Company Number: US-BAYER-2023A070667

PATIENT
  Age: 22 Year
  Sex: Female

DRUGS (1)
  1. MIRENA [Suspect]
     Active Substance: LEVONORGESTREL
     Dosage: 20?G/DAY
     Route: 015
     Dates: start: 2005

REACTIONS (6)
  - Device breakage [None]
  - Mental disorder [None]
  - Depression [None]
  - Anxiety [None]
  - Stress [None]
  - Premature menopause [None]

NARRATIVE: CASE EVENT DATE: 20050101
